FAERS Safety Report 7386361-2 (Version None)
Quarter: 2011Q1

REPORT INFORMATION
  Report Type: 
  Country: None (occurrence: None)
  Receive Date: 20110331
  Receipt Date: 20110318
  Transmission Date: 20110831
  Serious: Yes (Other)
  Sender: FDA-Public Use
  Company Number: PHHY2010CA84490

PATIENT
  Sex: Female

DRUGS (10)
  1. FUROSEMIDE [Concomitant]
     Dosage: 1 DF, DAILY
  2. CARBOCAL D [Concomitant]
     Dosage: 1 DF, BID
  3. COVERSYL [Concomitant]
  4. METOPROLOL [Concomitant]
     Dosage: 1 DF, BID
  5. SIMVASTATIN [Concomitant]
     Dosage: 1 TABLET DAILY
  6. ALPRAZOLAM [Concomitant]
  7. ASPIRIN [Concomitant]
  8. ACLASTA [Suspect]
     Indication: OSTEOPOROSIS
     Dosage: 5 MG, UNK
     Route: 042
     Dates: start: 20091125
  9. ACLASTA [Suspect]
     Dosage: 5 MG, UNK
     Route: 042
     Dates: start: 20101209
  10. SEREVENT [Concomitant]

REACTIONS (4)
  - ARTHRALGIA [None]
  - MITRAL VALVE STENOSIS [None]
  - BACK PAIN [None]
  - PAIN IN EXTREMITY [None]
